FAERS Safety Report 14127557 (Version 1)
Quarter: 2017Q4

REPORT INFORMATION
  Report Type: Spontaneous
  Country: US (occurrence: US)
  Receive Date: 20171026
  Receipt Date: 20171026
  Transmission Date: 20180321
  Serious: No
  Sender: FDA-Public Use
  Company Number: US-TEVA-695370USA

PATIENT
  Sex: Female

DRUGS (1)
  1. ACETAMINOPHEN W/OXYCODONE [Suspect]
     Active Substance: ACETAMINOPHEN\OXYCODONE HYDROCHLORIDE
     Dosage: 10MG OXYCODONE + 325MG ACETAMINOPHEN

REACTIONS (4)
  - Headache [Unknown]
  - Drug ineffective [Unknown]
  - Chest discomfort [Unknown]
  - Abdominal discomfort [Unknown]
